FAERS Safety Report 11888695 (Version 1)
Quarter: 2016Q1

REPORT INFORMATION
  Report Type: Spontaneous
  Country: US (occurrence: US)
  Receive Date: 20160105
  Receipt Date: 20160105
  Transmission Date: 20160526
  Serious: No
  Sender: FDA-Public Use
  Company Number: US-SHIRE-US201516484

PATIENT
  Age: 83 Year
  Sex: Female
  Weight: 58.5 kg

DRUGS (1)
  1. GATTEX [Suspect]
     Active Substance: TEDUGLUTIDE\WATER
     Indication: SHORT-BOWEL SYNDROME
     Dosage: 0.3 ML, UNK
     Route: 058
     Dates: start: 20151203

REACTIONS (2)
  - Muscle spasms [Unknown]
  - Urine output decreased [Unknown]

NARRATIVE: CASE EVENT DATE: 201512
